FAERS Safety Report 6154537-8 (Version None)
Quarter: 2009Q2

REPORT INFORMATION
  Report Type: 
  Country: None (occurrence: None)
  Receive Date: 20090414
  Receipt Date: 20090408
  Transmission Date: 20091009
  Serious: Yes (Life-Threatening)
  Sender: FDA-Public Use
  Company Number: FR-GILEAD-2009-0021382

PATIENT
  Sex: Female

DRUGS (9)
  1. TRUVADA [Suspect]
     Indication: HIV INFECTION
     Route: 048
     Dates: start: 20081219, end: 20090320
  2. ANDROCUR [Suspect]
     Indication: POLYCYSTIC OVARIES
     Route: 048
     Dates: start: 20081101, end: 20090325
  3. REYATAZ [Suspect]
     Indication: HIV INFECTION
     Route: 048
     Dates: start: 20081219, end: 20090325
  4. NORVIR [Suspect]
     Indication: HIV INFECTION
     Route: 048
     Dates: start: 20081219, end: 20090325
  5. DIANE [Suspect]
     Dates: end: 20090325
  6. KARDEGIC [Concomitant]
  7. ZESTRIL [Concomitant]
  8. CARDENSIEL [Concomitant]
  9. PREVISCAN [Concomitant]

REACTIONS (2)
  - ENCEPHALOPATHY [None]
  - HEPATITIS FULMINANT [None]
